FAERS Safety Report 6306708-5 (Version None)
Quarter: 2009Q3

REPORT INFORMATION
  Report Type: 
  Country: None (occurrence: None)
  Receive Date: 20090812
  Receipt Date: 20090515
  Transmission Date: 20100115
  Serious: No
  Sender: FDA-Public Use
  Company Number: A0784588A

PATIENT
  Age: 60 Year
  Sex: Male

DRUGS (4)
  1. VERAMYST [Suspect]
     Route: 045
     Dates: start: 20090401
  2. LIPITOR [Concomitant]
  3. ZETIA [Concomitant]
  4. ASPIRIN [Concomitant]

REACTIONS (2)
  - BLOOD PRESSURE FLUCTUATION [None]
  - HEART RATE DECREASED [None]
